FAERS Safety Report 17831328 (Version 1)
Quarter: 2020Q2

REPORT INFORMATION
  Report Type: Spontaneous
  Country: NL (occurrence: NL)
  Receive Date: 20200527
  Receipt Date: 20200527
  Transmission Date: 20200714
  Serious: Yes (Other)
  Sender: FDA-Public Use
  Company Number: NL-TEVA-2020-NL-1240038

PATIENT
  Age: 64 Year
  Sex: Male
  Weight: 130 kg

DRUGS (4)
  1. ATORVASTATINE [Suspect]
     Active Substance: ATORVASTATIN
     Indication: HYPERCHOLESTEROLAEMIA
     Dosage: 10 MILLIGRAM DAILY;
     Dates: start: 20200224, end: 20200415
  2. METOPROLOL RET 50 MG [Concomitant]
     Dosage: ALL THREE TABLETS ONCE A DAY?THERAPY START DATE AND THERAPY END DATE : ASKED BUT UNKNOWN ?1 DOSAGE
  3. OMEPRAZOL 40 MG [Concomitant]
     Active Substance: OMEPRAZOLE
     Dosage: 1 DOSAGE FORMS ?ALL THREE TABLETS ONCE A DAY?THERAPY START DATE AND THERAPY END DATE : ASKED BUT UNK
  4. ACETYL SALICYL 80 MG [Concomitant]
     Dosage: 1 DOSAGE FORMS ?ALL THREE TABLETS ONCE A DAY?THERAPY START DATE AND THERAPY END DATE : ASKED BUT UNK

REACTIONS (1)
  - Skin exfoliation [Recovering/Resolving]

NARRATIVE: CASE EVENT DATE: 20200316
